FAERS Safety Report 16795415 (Version 1)
Quarter: 2019Q3

REPORT INFORMATION
  Report Type: Spontaneous
  Country: JP (occurrence: JP)
  Receive Date: 20190911
  Receipt Date: 20190911
  Transmission Date: 20191005
  Serious: Yes (Other)
  Sender: FDA-Public Use
  Company Number: JP-ASTRAZENECA-2019SF27180

PATIENT
  Age: 70 Year

DRUGS (1)
  1. LYNPARZA [Suspect]
     Active Substance: OLAPARIB
     Indication: OVARIAN CANCER
     Dosage: 150.0MG UNKNOWN
     Route: 048

REACTIONS (3)
  - Interstitial lung disease [Unknown]
  - Neutrophil count decreased [Unknown]
  - Anaemia [Unknown]
